FAERS Safety Report 9784695 (Version 1)
Quarter: 2013Q4

REPORT INFORMATION
  Report Type: Report from Study
  Country: US (occurrence: US)
  Receive Date: 20131226
  Receipt Date: 20131226
  Transmission Date: 20140711
  Serious: Yes (Other)
  Sender: FDA-Public Use
  Company Number: US-ROCHE-1323969

PATIENT
  Sex: Male
  Weight: 54.93 kg

DRUGS (1)
  1. NUTROPIN AQ [Suspect]
     Indication: BODY HEIGHT BELOW NORMAL
     Route: 058

REACTIONS (1)
  - Scoliosis [Unknown]
